FAERS Safety Report 24771056 (Version 3)
Quarter: 2025Q2

REPORT INFORMATION
  Report Type: Spontaneous
  Country: IR (occurrence: IR)
  Receive Date: 20241224
  Receipt Date: 20250519
  Transmission Date: 20250716
  Serious: Yes (Death)
  Sender: KAMADA BIOPHARMACEUTICALS
  Company Number: IR-KAMADA LIMITED-2024-KAM-IR000564

PATIENT

DRUGS (1)
  1. HUMAN RABIES VIRUS IMMUNE GLOBULIN [Suspect]
     Active Substance: HUMAN RABIES VIRUS IMMUNE GLOBULIN
     Indication: Rabies immunisation
     Route: 065

REACTIONS (1)
  - Drug ineffective [Fatal]
